FAERS Safety Report 5506897-6 (Version None)
Quarter: 2007Q4

REPORT INFORMATION
  Report Type: 
  Country: None (occurrence: None)
  Receive Date: 20071105
  Receipt Date: 20071026
  Transmission Date: 20080405
  Serious: Yes (Death)
  Sender: FDA-Public Use
  Company Number: US-PFIZER INC-2007090791

PATIENT
  Age: 79 Year
  Sex: Female

DRUGS (4)
  1. LIPITOR [Suspect]
  2. FOSAMAX [Concomitant]
  3. IMDUR [Concomitant]
  4. ALTACE [Concomitant]

REACTIONS (1)
  - DEATH [None]
